FAERS Safety Report 9544160 (Version 2)
Quarter: 2013Q3

REPORT INFORMATION
  Report Type: Spontaneous
  Country: US (occurrence: US)
  Receive Date: 20130923
  Receipt Date: 20130923
  Transmission Date: 20140515
  Serious: Yes (Death, Hospitalization, Other)
  Sender: FDA-Public Use
  Company Number: US-ASTRAZENECA-2013SE69448

PATIENT
  Sex: Male

DRUGS (5)
  1. SYNAGIS [Suspect]
     Indication: ANTIVIRAL PROPHYLAXIS
     Route: 030
  2. RIBAVIRIN [Concomitant]
     Indication: ANTIVIRAL PROPHYLAXIS
  3. TACROLIMUS [Concomitant]
     Indication: IMMUNOSUPPRESSANT DRUG THERAPY
     Dosage: 6.9 TO 9.4 NG/ML
  4. PREDNISONE [Concomitant]
     Indication: BRONCHOSPASM
  5. RITUXIMAB [Concomitant]

REACTIONS (3)
  - Respiratory syncytial virus infection [Fatal]
  - Respiratory failure [Fatal]
  - Off label use [Unknown]
